FAERS Safety Report 9602831 (Version 2)
Quarter: 2013Q4

REPORT INFORMATION
  Report Type: Spontaneous
  Country: US (occurrence: US)
  Receive Date: 20131007
  Receipt Date: 20131029
  Transmission Date: 20140711
  Serious: Yes (Hospitalization)
  Sender: FDA-Public Use
  Company Number: US-B.I. PHARMACEUTICALS,INC./RIDGEFIELD-2013-BI-31293BP

PATIENT
  Age: 73 Year
  Sex: Female
  Weight: 99.33 kg

DRUGS (7)
  1. JENTADUETO [Suspect]
     Indication: TYPE 2 DIABETES MELLITUS
     Dosage: STRENGTH: 2.5 MG / 500 MG; DAILY DOSE: 54MG/1000MG
     Route: 048
     Dates: start: 201305, end: 20130915
  2. LIPITOR [Concomitant]
     Indication: HYPERCHOLESTEROLAEMIA
     Dosage: 20 MG
     Dates: start: 200006
  3. LIPITOR [Concomitant]
     Indication: HYPERLIPIDAEMIA
  4. LANTUS [Concomitant]
     Indication: DIABETES MELLITUS
     Dosage: FORMULATION: PEN
     Dates: start: 201106
  5. GLIPIZIDE/METFORMIN [Concomitant]
     Indication: TYPE 2 DIABETES MELLITUS
     Dosage: DOSE PER APPLICATION: 5/500 MG, DAILY DOSE: 10/1000 MG
     Dates: start: 201305
  6. DIOVAN [Concomitant]
     Indication: HYPERTENSION
     Dosage: 160 MG
     Dates: start: 201309
  7. HCTZ [Concomitant]
     Dates: end: 20130915

REACTIONS (1)
  - Pancreatitis acute [Recovered/Resolved]
